FAERS Safety Report 8313985-8 (Version None)
Quarter: 2012Q2

REPORT INFORMATION
  Report Type: 
  Country: None (occurrence: None)
  Receive Date: 20120426
  Receipt Date: 20110808
  Transmission Date: 20120825
  Serious: Yes (Other)
  Sender: FDA-Public Use
  Company Number: US-TEVA-US021971

PATIENT
  Sex: Male
  Weight: 114 kg

DRUGS (6)
  1. ADDERALL 5 [Concomitant]
     Indication: ATTENTION DEFICIT/HYPERACTIVITY DISORDER
     Dosage: 60 MILLIGRAM;
     Route: 048
  2. KLONOPIN [Concomitant]
     Indication: CONVULSION
     Route: 048
  3. PROVIGIL [Suspect]
     Indication: NARCOLEPSY
     Dosage: 200 MILLIGRAM;
     Route: 048
     Dates: start: 20070101
  4. DEPAKOTE [Concomitant]
     Indication: CONVULSION
     Dosage: 2250 MILLIGRAM;
     Route: 048
  5. KEPPRA [Concomitant]
     Indication: CONVULSION
     Dosage: 750 MILLIGRAM;
     Route: 048
  6. TRAZODONE HCL [Concomitant]
     Dosage: 50 MILLIGRAM;
     Route: 048

REACTIONS (1)
  - HAEMATURIA [None]
